FAERS Safety Report 6934775 (Version 5)
Quarter: 2014Q3

REPORT INFORMATION
  Report Type: Spontaneous
  Country: DE (occurrence: DE)
  Receive Date: 20090312
  Receipt Date: 20140729
  Transmission Date: 20150326
  Serious: Yes (Hospitalization)
  Sender: FDA-Public Use
  Company Number: DE-RANBAXY-2009RR-22260

PATIENT
  Age: 74 Year
  Sex: Male
  Weight: 70 kg

DRUGS (9)
  1. AMITRIPTYLINE [Concomitant]
     Active Substance: AMITRIPTYLINE
     Indication: DEPRESSION
     Dosage: 25 MG, QD
     Route: 048
     Dates: start: 1985
  2. FALITHROM [Suspect]
     Active Substance: PHENPROCOUMON
     Indication: AORTIC VALVE REPLACEMENT
     Dosage: 1.5 MG, QD
     Route: 048
     Dates: start: 2001, end: 20081031
  3. DIOVAN [Concomitant]
     Active Substance: VALSARTAN
     Indication: HYPERTENSION
     Dosage: 160 MG, QD
     Route: 048
     Dates: start: 2002
  4. METOPROLOL SUCC [Concomitant]
     Active Substance: METOPROLOL SUCCINATE
     Indication: TACHYCARDIA
     Dosage: 47.5 MG, BID
     Route: 048
     Dates: start: 2000
  5. SIMVASTATIN. [Concomitant]
     Active Substance: SIMVASTATIN
     Indication: HYPERCHOLESTEROLAEMIA
     Dosage: 30 MG, QD
     Route: 048
     Dates: start: 2004
  6. ALLOPURINOL. [Concomitant]
     Active Substance: ALLOPURINOL
     Indication: HYPERURICAEMIA
     Dosage: 100 MG, QD
     Route: 048
     Dates: start: 200805
  7. OMEP [Concomitant]
     Active Substance: OMEPRAZOLE
     Indication: PROPHYLAXIS AGAINST GASTROINTESTINAL ULCER
     Dosage: 20 MG, QD
     Route: 048
     Dates: start: 2004, end: 20081031
  8. DIGIMERCK PICO [Concomitant]
     Indication: ATRIAL FIBRILLATION
     Dosage: 0.05 MG, QD
     Route: 048
     Dates: start: 200603
  9. IBUPROFEN. [Suspect]
     Active Substance: IBUPROFEN
     Indication: GOUTY ARTHRITIS
     Dosage: 400 MG, QD
     Route: 048
     Dates: start: 20080901, end: 20081029

REACTIONS (2)
  - Gastrointestinal haemorrhage [Recovered/Resolved]
  - Drug interaction [Recovered/Resolved]

NARRATIVE: CASE EVENT DATE: 20081101
